FAERS Safety Report 13641851 (Version 1)
Quarter: 2017Q2

REPORT INFORMATION
  Report Type: Spontaneous
  Country: US (occurrence: US)
  Receive Date: 20170609
  Receipt Date: 20170609
  Transmission Date: 20170830
  Serious: Yes (Life-Threatening)
  Sender: FDA-Public Use
  Company Number: None

PATIENT
  Age: 64 Year
  Sex: Male
  Weight: 152.3 kg

DRUGS (2)
  1. MORPHINE [Suspect]
     Active Substance: MORPHINE
     Indication: PAIN
     Dates: start: 20170528, end: 20170529
  2. HYDROMORPHONE [Suspect]
     Active Substance: HYDROMORPHONE
     Indication: PAIN
     Dates: start: 20170528, end: 20170529

REACTIONS (11)
  - Acute kidney injury [None]
  - Respiratory failure [None]
  - Fall [None]
  - Syncope [None]
  - Unresponsive to stimuli [None]
  - Asthenia [None]
  - Mental status changes [None]
  - Respiratory rate decreased [None]
  - Drug screen positive [None]
  - Somnolence [None]
  - Overdose [None]

NARRATIVE: CASE EVENT DATE: 20170529
